FAERS Safety Report 5106409-5 (Version None)
Quarter: 2006Q3

REPORT INFORMATION
  Report Type: 
  Country: None (occurrence: None)
  Receive Date: 20060918
  Receipt Date: 20060911
  Transmission Date: 20061208
  Serious: Yes (Other)
  Sender: FDA-Public Use
  Company Number: PHRM2006FR02539

PATIENT
  Sex: Male

DRUGS (2)
  1. FORADIL [Suspect]
     Indication: ASTHMA
  2. BRICANYL [Concomitant]
     Dosage: UNK, PRN

REACTIONS (1)
  - ATRIAL FIBRILLATION [None]
